FAERS Safety Report 24627434 (Version 5)
Quarter: 2025Q3

REPORT INFORMATION
  Report Type: Report from Study
  Country: CA (occurrence: CA)
  Receive Date: 20241116
  Receipt Date: 20250711
  Transmission Date: 20251021
  Serious: Yes (Hospitalization, Other)
  Sender: CELLTRION
  Company Number: CA-CELLTRION INC.-2024CA014628

PATIENT

DRUGS (2)
  1. INFLIXIMAB-DYYB [Suspect]
     Active Substance: INFLIXIMAB-DYYB
     Indication: Crohn^s disease
     Dosage: 240 MG, Q2WEEKS/ 1 EVERY 2 WEEKS/ 240 MILLIGRAM, 1 EVERY 2 WEEKS
     Route: 058
     Dates: start: 20240711, end: 20241113
  2. INFLIXIMAB-DYYB [Suspect]
     Active Substance: INFLIXIMAB-DYYB
     Dosage: 120 MG, EOW/120.0 MILLIGRAM, 1 EVERY 2 WEEKS
     Route: 058
     Dates: end: 2025

REACTIONS (7)
  - Hospitalisation [Not Recovered/Not Resolved]
  - Condition aggravated [Not Recovered/Not Resolved]
  - Lung disorder [Not Recovered/Not Resolved]
  - Loss of consciousness [Not Recovered/Not Resolved]
  - T-cell lymphoma [Not Recovered/Not Resolved]
  - Interstitial lung disease [Not Recovered/Not Resolved]
  - Off label use [Not Recovered/Not Resolved]
